FAERS Safety Report 4603749-0 (Version None)
Quarter: 2005Q1

REPORT INFORMATION
  Report Type: 
  Country: None (occurrence: None)
  Receive Date: 20050308
  Receipt Date: 20050308
  Transmission Date: 20050727
  Serious: Yes (Death)
  Sender: FDA-Public Use
  Company Number: None

PATIENT
  Sex: Male
  Weight: 103.9644 kg

DRUGS (17)
  1. GATIFLOXACIN [Suspect]
     Indication: TRANSURETHRAL PROSTATECTOMY
     Dosage: 200MG  DAILY   ORAL
     Route: 048
     Dates: start: 20041129, end: 20051210
  2. GATIFLOXACIN [Suspect]
     Indication: TRANSURETHRAL PROSTATECTOMY
     Dosage: 200MG  DAILY   ORAL
     Route: 048
     Dates: start: 20041216, end: 20051227
  3. ALBUTEROL [Concomitant]
  4. ALLOPURINOL [Concomitant]
  5. CALCIUM CARBONATE [Concomitant]
  6. ASPIRIN [Concomitant]
  7. FLUNISOLIDE [Concomitant]
  8. GATIFLOXACIN [Concomitant]
  9. GUAIFENESIN [Concomitant]
  10. SSI [Concomitant]
  11. IPRATROPIUM BROMIDE [Concomitant]
  12. ISOSORBIDE DINITRATE [Concomitant]
  13. FLAGYL [Concomitant]
  14. DILANTIN [Concomitant]
  15. RANITIDINE [Concomitant]
  16. SIMVASTATIN [Concomitant]
  17. GLIPIZIDE [Concomitant]

REACTIONS (7)
  - ANORECTAL DISORDER [None]
  - CLOSTRIDIUM COLITIS [None]
  - DIARRHOEA [None]
  - HAEMODYNAMIC INSTABILITY [None]
  - ISCHAEMIA [None]
  - MEGACOLON [None]
  - ORGAN FAILURE [None]
